FAERS Safety Report 4896072-0 (Version None)
Quarter: 2005Q4

REPORT INFORMATION
  Report Type: 
  Country: None (occurrence: None)
  Receive Date: 20051220
  Receipt Date: 20050822
  Transmission Date: 20060501
  Serious: Yes (Hospitalization)
  Sender: FDA-Public Use
  Company Number: US147368

PATIENT
  Age: 11 Year
  Sex: Female

DRUGS (4)
  1. ENBREL [Suspect]
     Indication: JUVENILE ARTHRITIS
     Dosage: 25 MG, 2 IN 1 WEEKS, SC
     Route: 058
     Dates: start: 20050519, end: 20050720
  2. METHOTREXATE [Concomitant]
  3. PREDNISONE [Concomitant]
  4. NAPROXEN [Concomitant]

REACTIONS (4)
  - ABSCESS [None]
  - CELLULITIS [None]
  - EPISTAXIS [None]
  - WOUND INFECTION STAPHYLOCOCCAL [None]
